FAERS Safety Report 16491924 (Version 1)
Quarter: 2019Q2

REPORT INFORMATION
  Report Type: Spontaneous
  Country: CH (occurrence: CH)
  Receive Date: 20190628
  Receipt Date: 20190628
  Transmission Date: 20190711
  Serious: Yes (Other)
  Sender: FDA-Public Use
  Company Number: CH-ACCORD-135471

PATIENT
  Age: 11 Year
  Sex: Male

DRUGS (3)
  1. SERETIDE [Concomitant]
     Active Substance: FLUTICASONE PROPIONATE\SALMETEROL XINAFOATE
     Indication: ASTHMA
     Dosage: FOR LAST FEW YEARS
  2. MONTELUKAST [Suspect]
     Active Substance: MONTELUKAST SODIUM
     Indication: ASTHMA
  3. VENTOLIN [Concomitant]
     Active Substance: ALBUTEROL SULFATE
     Indication: ASTHMA
     Dosage: FOR LAST FEW YEARS

REACTIONS (6)
  - Irritability [Recovering/Resolving]
  - Disturbance in attention [Recovering/Resolving]
  - Neuropsychiatric symptoms [Recovering/Resolving]
  - Educational problem [Recovering/Resolving]
  - Restlessness [Recovering/Resolving]
  - Nervousness [Recovering/Resolving]
